FAERS Safety Report 6506478-1 (Version None)
Quarter: 2009Q4

REPORT INFORMATION
  Report Type: 
  Country: None (occurrence: None)
  Receive Date: 20091221
  Receipt Date: 20091211
  Transmission Date: 20100525
  Serious: Yes (Other)
  Sender: FDA-Public Use
  Company Number: US-BIOGENIDEC-2009BI039147

PATIENT
  Sex: Female

DRUGS (2)
  1. AVONEX [Suspect]
     Indication: MULTIPLE SCLEROSIS
     Route: 030
     Dates: start: 19970101, end: 19980101
  2. AVONEX [Suspect]
     Route: 030
     Dates: start: 19990802, end: 20070101

REACTIONS (5)
  - BLADDER DISORDER [None]
  - DERMAL SINUS [None]
  - DEVICE DISLOCATION [None]
  - INFECTION [None]
  - POST PROCEDURAL INFECTION [None]
